FAERS Safety Report 13013113 (Version 3)
Quarter: 2017Q4

REPORT INFORMATION
  Report Type: Report from Study
  Country: None (occurrence: US)
  Receive Date: 20161209
  Receipt Date: 20171219
  Transmission Date: 20180320
  Serious: Yes (Other)
  Sender: FDA-Public Use
  Company Number: US-ABBVIE-16K-163-1800461-00

PATIENT
  Sex: Female

DRUGS (2)
  1. HUMIRA [Suspect]
     Active Substance: ADALIMUMAB
     Indication: PSORIATIC ARTHROPATHY
     Route: 058
  2. HUMIRA [Suspect]
     Active Substance: ADALIMUMAB
     Indication: PSORIASIS

REACTIONS (9)
  - Pain in extremity [Unknown]
  - Varicose vein [Recovering/Resolving]
  - Peripheral arterial occlusive disease [Recovered/Resolved]
  - Postoperative adhesion [Unknown]
  - Back pain [Not Recovered/Not Resolved]
  - Venous occlusion [Unknown]
  - Blood count abnormal [Recovered/Resolved]
  - Dislocation of vertebra [Not Recovered/Not Resolved]
  - Vascular calcification [Recovering/Resolving]

NARRATIVE: CASE EVENT DATE: 2016
